FAERS Safety Report 14188568 (Version 1)
Quarter: 2017Q4

REPORT INFORMATION
  Report Type: Other
  Country: JP (occurrence: JP)
  Receive Date: 20171114
  Receipt Date: 20171114
  Transmission Date: 20180321
  Serious: Yes (Hospitalization)
  Sender: FDA-Public Use
  Company Number: JP-DSJP-DSJ-2017-153442

PATIENT

DRUGS (9)
  1. SELARA [Suspect]
     Active Substance: EPLERENONE
     Indication: HYPERTENSION
     Dosage: 25 MG, QD
     Route: 048
     Dates: end: 20170812
  2. ATELEC [Concomitant]
     Active Substance: CILNIDIPINE
     Dosage: 5 MG, QD
     Route: 048
     Dates: start: 20170522
  3. MILTAX [Concomitant]
     Active Substance: VIDARABINE
     Dosage: UNK
     Route: 062
  4. BUFFERIN [Concomitant]
     Active Substance: ASPIRIN
     Dosage: UNK
     Route: 048
  5. MYSLEE [Concomitant]
     Active Substance: ZOLPIDEM TARTRATE
     Dosage: UNK
     Route: 048
  6. FRANDOL [Concomitant]
     Active Substance: ISOSORBIDE DINITRATE
     Dosage: UNK
     Route: 062
  7. OLMETEC OD [Suspect]
     Active Substance: OLMESARTAN MEDOXOMIL
     Indication: HYPERTENSION
     Dosage: 40 MG, QD
     Route: 048
     Dates: end: 20170812
  8. DEPAS [Concomitant]
     Active Substance: ETIZOLAM
     Dosage: 1 MG, QD
     Route: 048
  9. MYSER                              /01249201/ [Concomitant]
     Active Substance: DIFLUPREDNATE
     Dosage: UNK
     Route: 003

REACTIONS (5)
  - Abdominal pain upper [Unknown]
  - Hyperkalaemia [Recovered/Resolved]
  - Abdominal discomfort [Unknown]
  - Hyponatraemia [Recovered/Resolved]
  - Decreased appetite [Unknown]

NARRATIVE: CASE EVENT DATE: 20170723
